FAERS Safety Report 9677758 (Version 5)
Quarter: 2016Q1

REPORT INFORMATION
  Report Type: Report from Study
  Country: JP (occurrence: JP)
  Receive Date: 20131108
  Receipt Date: 20160324
  Transmission Date: 20160526
  Serious: Yes (Other)
  Sender: FDA-Public Use
  Company Number: JP-JNJFOC-20131102892

PATIENT
  Age: 83 Year
  Sex: Female
  Weight: 51 kg

DRUGS (9)
  1. XARELTO [Suspect]
     Active Substance: RIVAROXABAN
     Indication: ATRIAL FIBRILLATION
     Route: 048
     Dates: start: 20120824
  2. BALANCE [Concomitant]
     Active Substance: VITAMINS
     Route: 048
  3. ALLEGRA [Concomitant]
     Active Substance: FEXOFENADINE HYDROCHLORIDE
     Indication: PROPHYLAXIS
     Route: 048
     Dates: end: 20130319
  4. DIGOXIN. [Concomitant]
     Active Substance: DIGOXIN
     Route: 048
  5. MAINTATE [Concomitant]
     Active Substance: BISOPROLOL FUMARATE
     Route: 048
     Dates: end: 20130319
  6. XARELTO [Suspect]
     Active Substance: RIVAROXABAN
     Indication: CEREBROVASCULAR ACCIDENT PROPHYLAXIS
     Route: 048
     Dates: start: 20120824
  7. DABIGATRAN ETEXILATE [Concomitant]
     Active Substance: DABIGATRAN ETEXILATE
     Route: 048
     Dates: end: 20120824
  8. ALDACTONE A [Concomitant]
     Active Substance: SPIRONOLACTONE
     Route: 048
  9. SPIROPENT [Concomitant]
     Active Substance: CLENBUTEROL HYDROCHLORIDE
     Indication: PROPHYLAXIS
     Route: 048
     Dates: end: 20130319

REACTIONS (10)
  - Hepatic function abnormal [Not Recovered/Not Resolved]
  - Blood cholesterol increased [Unknown]
  - International normalised ratio increased [Unknown]
  - Prothrombin level increased [Unknown]
  - Aspartate aminotransferase increased [Unknown]
  - Platelet count decreased [Unknown]
  - Renal impairment [Not Recovered/Not Resolved]
  - Oedema peripheral [Recovering/Resolving]
  - Prothrombin time prolonged [Unknown]
  - Gamma-glutamyltransferase increased [Unknown]

NARRATIVE: CASE EVENT DATE: 20130205
